FAERS Safety Report 11977559 (Version 1)
Quarter: 2016Q1

REPORT INFORMATION
  Report Type: Spontaneous
  Country: US (occurrence: None)
  Receive Date: 20160128
  Receipt Date: 20160128
  Transmission Date: 20160526
  Serious: Yes (Life-Threatening)
  Sender: FDA-Public Use
  Company Number: None

PATIENT
  Age: 40 Year
  Sex: Male
  Weight: 164.2 kg

DRUGS (13)
  1. MS CONTIN [Concomitant]
     Active Substance: MORPHINE SULFATE
  2. FISH OIL [Concomitant]
     Active Substance: FISH OIL
  3. TRINTELLIX [Suspect]
     Active Substance: VORTIOXETINE HYDROBROMIDE
     Indication: PRODUCT USED FOR UNKNOWN INDICATION
     Dosage: 1.5 MG TABLET X 2 WEEKS THEN 1, ONCE DAILY, TAKEN BY MOUTH
     Dates: start: 20150123, end: 20150127
  4. EXCEDRIN MIGRAINE [Concomitant]
     Active Substance: ACETAMINOPHEN\ASPIRIN\CAFFEINE
  5. ELAVIL [Concomitant]
     Active Substance: AMITRIPTYLINE HYDROCHLORIDE
  6. ROBAXIN [Concomitant]
     Active Substance: METHOCARBAMOL
  7. LIFODERM PATCHES [Concomitant]
  8. LYRICA [Concomitant]
     Active Substance: PREGABALIN
  9. FLOMAX [Concomitant]
     Active Substance: TAMSULOSIN HYDROCHLORIDE
  10. XANAX [Concomitant]
     Active Substance: ALPRAZOLAM
  11. PRAVACHOL [Concomitant]
     Active Substance: PRAVASTATIN SODIUM
  12. ZYRTEC [Concomitant]
     Active Substance: CETIRIZINE HYDROCHLORIDE
  13. MS IMMEDIATE RELEASE [Concomitant]

REACTIONS (3)
  - Anger [None]
  - Confusional state [None]
  - Abnormal behaviour [None]

NARRATIVE: CASE EVENT DATE: 20150126
